FAERS Safety Report 21561694 (Version 1)
Quarter: 2022Q4

REPORT INFORMATION
  Report Type: Report from Study
  Country: US (occurrence: US)
  Receive Date: 20221107
  Receipt Date: 20221107
  Transmission Date: 20230113
  Serious: No
  Sender: FDA-Public Use
  Company Number: US-ABBVIE-4152934

PATIENT
  Sex: Female

DRUGS (4)
  1. HUMIRA [Suspect]
     Active Substance: ADALIMUMAB
     Indication: Rheumatoid arthritis
     Dosage: CITRATE FREE
     Route: 058
  2. Moderna [Concomitant]
     Indication: COVID-19 immunisation
     Dosage: 1ST DOSE/1 IN ONCE
     Route: 030
     Dates: start: 20210704, end: 20210704
  3. Moderna [Concomitant]
     Indication: COVID-19 immunisation
     Dosage: 2ND DOSE/1 IN ONCE
     Route: 030
     Dates: start: 20210820, end: 20210820
  4. Moderna [Concomitant]
     Indication: COVID-19 immunisation
     Dosage: BOOSTER OR 3RD DOSE/1 IN ONCE
     Route: 030
     Dates: start: 20220801, end: 20220801

REACTIONS (2)
  - Gout [Not Recovered/Not Resolved]
  - Blood uric acid increased [Not Recovered/Not Resolved]
